FAERS Safety Report 18427271 (Version 2)
Quarter: 2020Q4

REPORT INFORMATION
  Report Type: Spontaneous
  Country: US (occurrence: US)
  Receive Date: 20201026
  Receipt Date: 20201222
  Transmission Date: 20210114
  Serious: No
  Sender: FDA-Public Use
  Company Number: US-SA-2020SA298948

PATIENT

DRUGS (33)
  1. ZOFRAN [Concomitant]
     Active Substance: ONDANSETRON HYDROCHLORIDE
  2. LANTUS [Concomitant]
     Active Substance: INSULIN GLARGINE
  3. HUMALOG [Concomitant]
     Active Substance: INSULIN LISPRO
  4. SINGULAIR [Concomitant]
     Active Substance: MONTELUKAST SODIUM
  5. BYSTOLIC [Concomitant]
     Active Substance: NEBIVOLOL HYDROCHLORIDE
  6. LAC-HYDRIN [Concomitant]
     Active Substance: AMMONIUM LACTATE
  7. HYOSCYAMINE SULFATE. [Concomitant]
     Active Substance: HYOSCYAMINE SULFATE
  8. TORSEMIDE. [Concomitant]
     Active Substance: TORSEMIDE
  9. AUBAGIO [Suspect]
     Active Substance: TERIFLUNOMIDE
     Indication: MULTIPLE SCLEROSIS
     Dosage: 14 MG, QD
     Route: 048
     Dates: start: 20200401, end: 202012
  10. GABAPENTIN. [Concomitant]
     Active Substance: GABAPENTIN
  11. DICYCLOMINE HCL [Concomitant]
     Active Substance: DICYCLOMINE HYDROCHLORIDE
  12. NITROGLYCERIN. [Concomitant]
     Active Substance: NITROGLYCERIN
  13. OCUFLOX [Concomitant]
     Active Substance: OFLOXACIN
  14. XOPENEX [Concomitant]
     Active Substance: LEVALBUTEROL HYDROCHLORIDE
  15. SIMVASTATIN. [Concomitant]
     Active Substance: SIMVASTATIN
  16. DOCUSATE CALCIUM. [Concomitant]
     Active Substance: DOCUSATE CALCIUM
  17. PROBIOTIC [BIFIDOBACTERIUM LACTIS] [Concomitant]
     Active Substance: BIFIDOBACTERIUM ANIMALIS LACTIS
  18. ASPIRIN [ACETYLSALICYLIC ACID] [Concomitant]
     Active Substance: ASPIRIN
  19. BUSPIRONE HCL [Concomitant]
     Active Substance: BUSPIRONE HYDROCHLORIDE
  20. PROTONIX [OMEPRAZOLE] [Concomitant]
     Active Substance: OMEPRAZOLE
  21. FAMOTIDINE. [Concomitant]
     Active Substance: FAMOTIDINE
  22. LEVOTHYROXINE SODIUM. [Concomitant]
     Active Substance: LEVOTHYROXINE SODIUM
  23. WARFARIN SODIUM. [Concomitant]
     Active Substance: WARFARIN SODIUM
  24. PULMICORT FLEXHALER [Concomitant]
     Active Substance: BUDESONIDE
  25. KEPPRA [Concomitant]
     Active Substance: LEVETIRACETAM
  26. ALENDRONATE [Concomitant]
     Active Substance: ALENDRONATE SODIUM
  27. CETRIZINE [Concomitant]
     Active Substance: CETIRIZINE HYDROCHLORIDE
  28. PRIMIDONE. [Concomitant]
     Active Substance: PRIMIDONE
  29. FLONASE [MOMETASONE FUROATE] [Concomitant]
     Active Substance: MOMETASONE FUROATE
  30. NASONEX [Concomitant]
     Active Substance: MOMETASONE FUROATE
  31. NYSTATIN. [Concomitant]
     Active Substance: NYSTATIN
  32. ENTYVIO [Concomitant]
     Active Substance: VEDOLIZUMAB
  33. DUODERM CGF [CARMELLOSE SODIUM] [Concomitant]

REACTIONS (4)
  - Cardiac discomfort [Unknown]
  - Lung disorder [Unknown]
  - Bone pain [Unknown]
  - Inflammation [Unknown]

NARRATIVE: CASE EVENT DATE: 20201021
